FAERS Safety Report 7969654-7 (Version None)
Quarter: 2011Q4

REPORT INFORMATION
  Report Type: 
  Country: None (occurrence: None)
  Receive Date: 20111208
  Receipt Date: 20111129
  Transmission Date: 20120403
  Serious: Yes (Hospitalization, Other)
  Sender: FDA-Public Use
  Company Number: 2011MA003508

PATIENT
  Age: 45 Year
  Sex: Female
  Weight: 250 kg

DRUGS (10)
  1. METOCLOPRAMIDE [Suspect]
     Indication: DIABETIC GASTROPARESIS
     Dosage: 10 MG;QID;PO
     Route: 048
     Dates: start: 20080507, end: 20101211
  2. LYRICA [Concomitant]
  3. ZOFRAN [Concomitant]
  4. LISINOPRIL [Concomitant]
  5. KLOR-CON [Concomitant]
  6. LASIX [Concomitant]
  7. HUMALOG [Concomitant]
  8. LOMOTIL [Concomitant]
  9. METHADONE HCL [Concomitant]
  10. DIAZEPAM [Concomitant]

REACTIONS (26)
  - HEADACHE [None]
  - ASTHENIA [None]
  - HYPOAESTHESIA [None]
  - ARTHRALGIA [None]
  - EXCESSIVE EYE BLINKING [None]
  - AMNESIA [None]
  - DIPLOPIA [None]
  - KETOACIDOSIS [None]
  - LOSS OF CONSCIOUSNESS [None]
  - EXTRAPYRAMIDAL DISORDER [None]
  - ECONOMIC PROBLEM [None]
  - PAIN [None]
  - PERSONALITY CHANGE [None]
  - DIABETIC NEUROPATHY [None]
  - VOMITING [None]
  - HYPOGLYCAEMIA [None]
  - TONGUE DISORDER [None]
  - EMOTIONAL DISORDER [None]
  - HYPERGLYCAEMIA [None]
  - NEUROPATHY PERIPHERAL [None]
  - TINNITUS [None]
  - TARDIVE DYSKINESIA [None]
  - APPETITE DISORDER [None]
  - ANXIETY [None]
  - IRRITABILITY [None]
  - WRONG TECHNIQUE IN DRUG USAGE PROCESS [None]
